FAERS Safety Report 8074336-X (Version None)
Quarter: 2012Q1

REPORT INFORMATION
  Report Type: 
  Country: None (occurrence: None)
  Receive Date: 20120120
  Receipt Date: 20120104
  Transmission Date: 20120608
  Serious: Yes (Other)
  Sender: FDA-Public Use
  Company Number: 1145700

PATIENT
  Age: 10 Month
  Sex: Female

DRUGS (4)
  1. MELPHALAN HYDROCHLORIDE [Suspect]
     Indication: RETINOBLASTOMA UNILATERAL
     Dosage: 30 MG, UNKNOWN, INTRA-ARTERIAL
  2. SODIUM CHLORIDE [Concomitant]
  3. HEPARIN SODIUM [Concomitant]
  4. CARBOPLATIN [Suspect]
     Indication: RETINOBLASTOMA UNILATERAL
     Dosage: 30 MG, UNKNOWN INTRA0ARTERIAL

REACTIONS (10)
  - PANCYTOPENIA [None]
  - EYELID PTOSIS [None]
  - EXTRAOCULAR MUSCLE DISORDER [None]
  - OCULAR VASCULAR DISORDER [None]
  - IRIS NEOVASCULARISATION [None]
  - FOREIGN BODY REACTION [None]
  - VITREOUS HAEMORRHAGE [None]
  - EYELID OEDEMA [None]
  - EMBOLISM [None]
  - GLAUCOMA [None]
